FAERS Safety Report 5850417-3 (Version None)
Quarter: 2008Q3

REPORT INFORMATION
  Report Type: 
  Country: None (occurrence: None)
  Receive Date: 20080818
  Receipt Date: 20080805
  Transmission Date: 20090109
  Serious: Yes (Other)
  Sender: FDA-Public Use
  Company Number: 237421J08USA

PATIENT
  Age: 34 Year
  Sex: Female
  Weight: 110.6777 kg

DRUGS (5)
  1. REBIF [Suspect]
     Indication: MULTIPLE SCLEROSIS
     Dosage: 44 MCG, 3 IN 1 WEEKS, SUBCUTANEOUS
     Route: 058
     Dates: start: 20080312
  2. PAXIL [Concomitant]
  3. BACLOFEN [Concomitant]
  4. VITAMIN D [Concomitant]
  5. VITAMIN B12 (CYANOCOBALMIN) [Concomitant]

REACTIONS (1)
  - CHOLELITHIASIS [None]
